FAERS Safety Report 10089009 (Version 2)
Quarter: 2014Q2

REPORT INFORMATION
  Report Type: Spontaneous
  Country: GB (occurrence: GB)
  Receive Date: 20140421
  Receipt Date: 20140516
  Transmission Date: 20141212
  Serious: Yes (Hospitalization)
  Sender: FDA-Public Use
  Company Number: GB-NOVOPROD-406170

PATIENT
  Age: 41 Year
  Sex: Female
  Weight: 84.9 kg

DRUGS (8)
  1. VICTOZA [Suspect]
     Indication: TYPE 2 DIABETES MELLITUS
     Dosage: 0.6 MG, QD
     Route: 065
     Dates: start: 201105
  2. VICTOZA [Suspect]
     Indication: DIABETES MELLITUS INADEQUATE CONTROL
     Dosage: 1.2 MG, QD
     Route: 065
     Dates: start: 201202, end: 201308
  3. VICTOZA [Suspect]
     Indication: WEIGHT DECREASED
     Dosage: 1.8 MG, QD
     Route: 065
     Dates: start: 20130822, end: 201309
  4. VICTOZA [Suspect]
     Indication: OFF LABEL USE
     Dosage: UNK
     Route: 065
     Dates: start: 201311
  5. METFORMIN [Concomitant]
     Indication: TYPE 2 DIABETES MELLITUS
     Dosage: 1 G, BID
     Route: 065
  6. PIOGLITAZONE [Concomitant]
     Indication: TYPE 2 DIABETES MELLITUS
     Dosage: 30 MG, QD
     Route: 065
  7. SIMVASTATIN [Concomitant]
     Dosage: 40 MG, QD
     Route: 065
  8. MIRTAZAPINE [Concomitant]
     Dosage: 30 MG, QD
     Route: 065

REACTIONS (10)
  - Macroamylasaemia [Not Recovered/Not Resolved]
  - Abdominal pain [Unknown]
  - Nausea [Unknown]
  - Vomiting [Unknown]
  - Abdominal distension [Unknown]
  - Abdominal pain [Unknown]
  - Nausea [Unknown]
  - Vomiting [Unknown]
  - Abdominal distension [Unknown]
  - Off label use [Unknown]
